FAERS Safety Report 6855212-4 (Version None)
Quarter: 2010Q3

REPORT INFORMATION
  Report Type: 
  Country: None (occurrence: None)
  Receive Date: 20100718
  Receipt Date: 20100714
  Transmission Date: 20110219
  Serious: Yes (Other)
  Sender: FDA-Public Use
  Company Number: NO-BRISTOL-MYERS SQUIBB COMPANY-14989933

PATIENT
  Sex: Female

DRUGS (2)
  1. ATAZANAVIR [Suspect]
     Indication: HIV INFECTION
     Route: 048
  2. ABACAVIR [Suspect]
     Indication: HIV INFECTION
     Route: 048

REACTIONS (3)
  - LIVE BIRTH [None]
  - PREGNANCY [None]
  - PREMATURE LABOUR [None]
